FAERS Safety Report 16661829 (Version 2)
Quarter: 2019Q3

REPORT INFORMATION
  Report Type: Spontaneous
  Country: FR (occurrence: FR)
  Receive Date: 20190802
  Receipt Date: 20190923
  Transmission Date: 20191004
  Serious: Yes (Hospitalization)
  Sender: FDA-Public Use
  Company Number: FR-PFIZER INC-2019323356

PATIENT
  Age: 16 Year
  Sex: Female
  Weight: 60 kg

DRUGS (10)
  1. MESTINON [Concomitant]
     Active Substance: PYRIDOSTIGMINE BROMIDE
     Dosage: 120 MG, 2X/DAY AND 90 MG 2X/DAY
  2. PROSTINE [Suspect]
     Active Substance: DINOPROSTONE
     Route: 065
     Dates: start: 20190626, end: 20190626
  3. CELLCEPT [Concomitant]
     Active Substance: MYCOPHENOLATE MOFETIL\MYCOPHENOLATE MOFETIL HYDROCHLORIDE
     Dosage: 750 MG, 2X/DAY
  4. LEVOCARNIL [LEVOCARNITINE] [Concomitant]
     Active Substance: LEVOCARNITINE
     Dosage: 100 MG, 2X/DAY
  5. BACTRIM [Concomitant]
     Active Substance: SULFAMETHOXAZOLE\TRIMETHOPRIM
     Indication: PROPHYLAXIS
     Dosage: 2400 UNK, WEEKLY (3 TIMES A WEEK)
  6. PROSTIGMINE [NEOSTIGMINE METILSULFATE] [Concomitant]
     Indication: MUSCULAR WEAKNESS
     Dosage: NOT ADMINISTERED 0.5 MG/1 ML
  7. SALBUTAMOL [Concomitant]
     Active Substance: ALBUTEROL
     Dosage: 2 MG, 4X/DAY
     Route: 048
  8. LEVOCARNIL [LEVOCARNITINE] [Concomitant]
     Active Substance: LEVOCARNITINE
     Dosage: 500 MG, 2X/DAY
  9. COUMADINE [Concomitant]
     Active Substance: WARFARIN SODIUM
     Dosage: 8 MG, 1X/DAY (FOR INR BETWEEN 2-3)
  10. MESTINON [Concomitant]
     Active Substance: PYRIDOSTIGMINE BROMIDE
     Dosage: 180 MG, UNK

REACTIONS (4)
  - Myasthenia gravis [Recovered/Resolved]
  - Wrong drug [Recovered/Resolved]
  - Product administration error [Recovered/Resolved]
  - Product name confusion [Recovered/Resolved]

NARRATIVE: CASE EVENT DATE: 20190626
